FAERS Safety Report 20627014 (Version 1)
Quarter: 2022Q1

REPORT INFORMATION
  Report Type: Spontaneous
  Country: US (occurrence: None)
  Receive Date: 20220322
  Receipt Date: 20220322
  Transmission Date: 20220423
  Serious: Yes (Other)
  Sender: FDA-Public Use
  Company Number: None

PATIENT
  Age: 79 Year
  Sex: Female
  Weight: 55.35 kg

DRUGS (9)
  1. BRIMONIDINE TARTRATE/TIMOLOL MALEATE [Suspect]
     Active Substance: BRIMONIDINE TARTRATE\TIMOLOL MALEATE
     Indication: Intraocular pressure increased
     Dosage: FREQUENCY : EVERY 12 HOURS;?
     Route: 047
     Dates: start: 20220222, end: 20220315
  2. BRIMONIDINE TARTRATE/TIMOLOL MALEATE [Suspect]
     Active Substance: BRIMONIDINE TARTRATE\TIMOLOL MALEATE
     Indication: Prophylaxis
  3. BRIMONIDINE TARTRATE/TIMOLOL MALEATE [Suspect]
     Active Substance: BRIMONIDINE TARTRATE\TIMOLOL MALEATE
     Indication: Glaucoma
  4. LATANOPROST [Concomitant]
     Active Substance: LATANOPROST
  5. COMBIGAN [Concomitant]
     Active Substance: BRIMONIDINE TARTRATE\TIMOLOL MALEATE
  6. VITAMINS [Concomitant]
     Active Substance: VITAMINS
  7. CALCIUM [Concomitant]
     Active Substance: CALCIUM
  8. LOW DOSE ASPIRIN [Concomitant]
     Active Substance: ASPIRIN
  9. ARRED EYE VITAMIN [Concomitant]

REACTIONS (6)
  - Product substitution issue [None]
  - Instillation site irritation [None]
  - Instillation site erythema [None]
  - Instillation site pain [None]
  - Instillation site pruritus [None]
  - Skin burning sensation [None]

NARRATIVE: CASE EVENT DATE: 20220314
